FAERS Safety Report 7926709-0 (Version None)
Quarter: 2011Q4

REPORT INFORMATION
  Report Type: 
  Country: None (occurrence: None)
  Receive Date: 20111118
  Receipt Date: 20111109
  Transmission Date: 20120403
  Serious: No
  Sender: FDA-Public Use
  Company Number: CH-JNJFOC-20111104130

PATIENT
  Age: 37 Year
  Sex: Male

DRUGS (2)
  1. DURAGESIC-100 [Suspect]
     Indication: PRODUCT USED FOR UNKNOWN INDICATION
     Route: 062
  2. DURAGESIC-100 [Suspect]
     Route: 062

REACTIONS (7)
  - WRONG TECHNIQUE IN DRUG USAGE PROCESS [None]
  - INAPPROPRIATE SCHEDULE OF DRUG ADMINISTRATION [None]
  - DIZZINESS [None]
  - HEADACHE [None]
  - SOMNOLENCE [None]
  - VOMITING [None]
  - DRUG EFFECT DECREASED [None]
